FAERS Safety Report 16819972 (Version 2)
Quarter: 2020Q2

REPORT INFORMATION
  Report Type: Report from Study
  Country: None (occurrence: CA)
  Receive Date: 20190918
  Receipt Date: 20200415
  Transmission Date: 20200713
  Serious: Yes (Hospitalization, Other)
  Sender: FDA-Public Use
  Company Number: CA-ABBVIE-19K-028-2920771-00

PATIENT
  Age: 68 Year
  Sex: Female
  Weight: 73 kg

DRUGS (5)
  1. VITAMINS [Concomitant]
     Active Substance: VITAMINS
     Indication: PRODUCT USED FOR UNKNOWN INDICATION
     Dates: end: 2019
  2. MTX [Concomitant]
     Active Substance: METHOTREXATE SODIUM
     Indication: PRODUCT USED FOR UNKNOWN INDICATION
     Dates: end: 2019
  3. HUMIRA [Suspect]
     Active Substance: ADALIMUMAB
     Indication: PSORIATIC ARTHROPATHY
     Route: 058
     Dates: start: 20190605, end: 201907
  4. TELMISARTAN. [Concomitant]
     Active Substance: TELMISARTAN
     Indication: PRODUCT USED FOR UNKNOWN INDICATION
  5. CRESTOR [Concomitant]
     Active Substance: ROSUVASTATIN CALCIUM
     Indication: PRODUCT USED FOR UNKNOWN INDICATION
     Dates: end: 2019

REACTIONS (15)
  - Dysstasia [Unknown]
  - Tuberculosis [Not Recovered/Not Resolved]
  - Asthenia [Unknown]
  - Intra-abdominal fluid collection [Unknown]
  - Dyspepsia [Unknown]
  - Headache [Unknown]
  - Lacrimation increased [Unknown]
  - Abdominal distension [Unknown]
  - Infection [Unknown]
  - Hypophagia [Unknown]
  - Abdominal pain upper [Unknown]
  - Gait inability [Unknown]
  - Dyspnoea [Unknown]
  - Sneezing [Unknown]
  - Nodule [Unknown]

NARRATIVE: CASE EVENT DATE: 201907
